FAERS Safety Report 6030193-4 (Version None)
Quarter: 2009Q1

REPORT INFORMATION
  Report Type: 
  Country: None (occurrence: None)
  Receive Date: 20090107
  Receipt Date: 20080812
  Transmission Date: 20090719
  Serious: No
  Sender: FDA-Public Use
  Company Number: US-BAYER-200813391BCC

PATIENT
  Age: 70 Year
  Sex: Female
  Weight: 73 kg

DRUGS (4)
  1. ALEVE [Suspect]
     Indication: ARTHRALGIA
     Dates: start: 19940101, end: 20080810
  2. LISINOPRIL [Concomitant]
  3. LIPITOR [Concomitant]
  4. GLUCOSAMINE CHONDROITIN [Concomitant]

REACTIONS (1)
  - ARTHRALGIA [None]
